FAERS Safety Report 9006078 (Version 1)
Quarter: 2013Q1

REPORT INFORMATION
  Report Type: Spontaneous
  Country: NL (occurrence: NL)
  Receive Date: 20130109
  Receipt Date: 20130109
  Transmission Date: 20140127
  Serious: Yes (Hospitalization, Other)
  Sender: FDA-Public Use
  Company Number: PHHY2012NL120331

PATIENT
  Sex: Female

DRUGS (6)
  1. ZOMETA [Suspect]
     Indication: BREAST CANCER METASTATIC
     Dosage: 4 MG, ONCE PER 28 DAYS
     Route: 042
  2. ZOMETA [Suspect]
     Dosage: 4 MG, ONCE PER 28 DAYS
     Route: 042
     Dates: start: 20120726
  3. ZOMETA [Suspect]
     Dosage: 4 MG, ONCE PER 28 DAYS
     Route: 042
     Dates: start: 20121018
  4. ZOMETA [Suspect]
     Dosage: 4 MG, ONCE PER 28 DAYS
     Route: 042
     Dates: start: 20121224
  5. ZOMETA [Suspect]
     Dosage: 4 MG, ONCE PER 28 DAYS
     Route: 042
     Dates: start: 20130104
  6. RADIOTHERAPY [Concomitant]

REACTIONS (8)
  - Respiratory tract infection [Recovered/Resolved]
  - Dyspnoea [Recovered/Resolved]
  - Hypertension [Unknown]
  - Chest discomfort [Not Recovered/Not Resolved]
  - Heart rate irregular [Unknown]
  - Decreased appetite [Not Recovered/Not Resolved]
  - Malaise [Unknown]
  - Fatigue [Not Recovered/Not Resolved]
